FAERS Safety Report 9652436 (Version 7)
Quarter: 2015Q1

REPORT INFORMATION
  Report Type: Spontaneous
  Country: JP (occurrence: JP)
  Receive Date: 20131029
  Receipt Date: 20150218
  Transmission Date: 20150721
  Serious: Yes (Life-Threatening, Hospitalization, Disabling)
  Sender: FDA-Public Use
  Company Number: JP-ACTELION-A-CH2013-90550

PATIENT
  Age: 21 Year
  Sex: Male
  Weight: 50 kg

DRUGS (10)
  1. VELETRI [Suspect]
     Active Substance: EPOPROSTENOL
     Indication: PULMONARY ARTERIAL HYPERTENSION
     Dosage: 26.9 NG/KG, PER MIN
     Route: 042
     Dates: start: 20130815, end: 20130916
  2. TRANEXAMIC ACID. [Concomitant]
     Active Substance: TRANEXAMIC ACID
  3. DOBUTAMINE HYDROCHLORIDE. [Concomitant]
     Active Substance: DOBUTAMINE HYDROCHLORIDE
  4. SILDENAFIL CITRATE. [Concomitant]
     Active Substance: SILDENAFIL CITRATE
  5. VELETRI [Suspect]
     Active Substance: EPOPROSTENOL
     Dosage: 38.8 NG/KG, PER MIN
     Route: 042
     Dates: start: 20130917, end: 20131014
  6. VELETRI [Suspect]
     Active Substance: EPOPROSTENOL
     Dosage: 41.8 NG/KG, PER MIN
     Route: 042
     Dates: start: 20131015, end: 20131028
  7. DOPAMINE HYDROCHLORIDE. [Concomitant]
     Active Substance: DOPAMINE HYDROCHLORIDE
  8. CARBAZOCHROME SODIUM SULFONATE [Concomitant]
     Active Substance: CARBAZOCHROME SODIUM SULFONATE
  9. MILRINONE [Concomitant]
     Active Substance: MILRINONE
  10. OXYGEN. [Concomitant]
     Active Substance: OXYGEN

REACTIONS (10)
  - Right ventricular failure [Recovered/Resolved]
  - Red blood cell count decreased [Recovered/Resolved]
  - Product colour issue [Recovered/Resolved]
  - Product quality issue [Recovered/Resolved]
  - No adverse event [Recovered/Resolved]
  - Device occlusion [Recovered/Resolved]
  - Anaemia [Recovered/Resolved]
  - Concomitant disease aggravated [Not Recovered/Not Resolved]
  - Platelet count decreased [Recovered/Resolved]
  - Haemoglobin decreased [Recovered/Resolved]

NARRATIVE: CASE EVENT DATE: 20130816
